FAERS Safety Report 6375217-X (Version None)
Quarter: 2009Q3

REPORT INFORMATION
  Report Type: 
  Country: None (occurrence: None)
  Receive Date: 20090924
  Receipt Date: 20090916
  Transmission Date: 20100115
  Serious: Yes (Other)
  Sender: FDA-Public Use
  Company Number: IT-PFIZER INC-2009269714

PATIENT
  Age: 77 Year

DRUGS (6)
  1. TOTALIP [Suspect]
     Dosage: UNK
     Dates: start: 20090520, end: 20090622
  2. LOPRESSOR [Concomitant]
     Dosage: UNK
  3. ASPIRIN [Concomitant]
     Dosage: UNK
  4. PLAVIX [Concomitant]
     Dosage: UNK
  5. ESKIM [Concomitant]
     Dosage: UNK
  6. PLAUNAC [Concomitant]
     Dosage: UNK

REACTIONS (1)
  - LIVER INJURY [None]
